FAERS Safety Report 8488902-0 (Version None)
Quarter: 2012Q3

REPORT INFORMATION
  Report Type: 
  Country: None (occurrence: None)
  Receive Date: 20120705
  Receipt Date: 20120626
  Transmission Date: 20120928
  Serious: Yes (Hospitalization, Other)
  Sender: FDA-Public Use
  Company Number: US-ASTRAZENECA-2011SE30755

PATIENT
  Age: 41 Year
  Sex: Female

DRUGS (4)
  1. SEROQUEL [Suspect]
     Indication: BIPOLAR DISORDER
     Route: 048
  2. CYMBALTA [Concomitant]
  3. LAMICTAL [Concomitant]
  4. NEXIUM [Suspect]
     Route: 048

REACTIONS (4)
  - UPPER LIMB FRACTURE [None]
  - STAB WOUND [None]
  - FAT NECROSIS [None]
  - BIPOLAR DISORDER [None]
